FAERS Safety Report 20133295 (Version 1)
Quarter: 2021Q4

REPORT INFORMATION
  Report Type: Spontaneous
  Country: US (occurrence: US)
  Receive Date: 20211201
  Receipt Date: 20211201
  Transmission Date: 20220303
  Serious: Yes (Hospitalization, Other)
  Sender: FDA-Public Use
  Company Number: US-ENDO PHARMACEUTICALS INC-2021-013086

PATIENT
  Age: 30 Year
  Sex: Male

DRUGS (1)
  1. OXANDROLONE [Suspect]
     Active Substance: OXANDROLONE
     Indication: Muscle building therapy
     Dosage: UNK UNKNOWN, UNKNOWN
     Route: 048

REACTIONS (2)
  - Renal tubular necrosis [Recovered/Resolved]
  - Drug abuse [Unknown]
